FAERS Safety Report 4649677-6 (Version None)
Quarter: 2005Q2

REPORT INFORMATION
  Report Type: 
  Country: None (occurrence: None)
  Receive Date: 20050502
  Receipt Date: 20050425
  Transmission Date: 20051028
  Serious: Yes (Death, Life-Threatening)
  Sender: FDA-Public Use
  Company Number: 200513605GDDC

PATIENT
  Age: 35 Year
  Sex: Male
  Weight: 68 kg

DRUGS (7)
  1. ENOXAPARIN SODIUM [Suspect]
     Indication: CEREBRAL ARTERY OCCLUSION
     Route: 058
     Dates: start: 20050424, end: 20050425
  2. FRUSEMIDE [Concomitant]
     Indication: BRAIN OEDEMA
     Route: 042
     Dates: start: 20050423, end: 20050426
  3. RANITIDINE [Concomitant]
     Route: 042
     Dates: start: 20050423, end: 20050426
  4. MANNITOL [Concomitant]
     Route: 042
     Dates: start: 20050424, end: 20050426
  5. ACETYL SALICYLIC ACID USP BAT [Concomitant]
     Dosage: ROUTE: NASOGASTRIC
     Route: 050
     Dates: start: 20050423, end: 20050426
  6. METOPROLOL TARTRATE [Concomitant]
     Dates: start: 20050423, end: 20050426
  7. ISOSORBIDE DINITRATE [Concomitant]
     Dates: start: 20050423, end: 20050426

REACTIONS (1)
  - CARDIAC ARREST [None]
